FAERS Safety Report 9185960 (Version 1)
Quarter: 2013Q1

REPORT INFORMATION
  Report Type: Spontaneous
  Country: BR (occurrence: BR)
  Receive Date: 20130325
  Receipt Date: 20130325
  Transmission Date: 20140127
  Serious: Yes (Other)
  Sender: FDA-Public Use
  Company Number: BR-ASTRAZENECA-2013SE17584

PATIENT
  Age: 78 Year
  Sex: Male
  Weight: 102 kg

DRUGS (6)
  1. CRESTOR [Suspect]
     Indication: BLOOD CHOLESTEROL ABNORMAL
     Route: 048
     Dates: start: 20130203
  2. BRILINTA [Suspect]
     Indication: ANTICOAGULANT THERAPY
     Route: 048
     Dates: start: 20130203
  3. SOMALGIN CARDIO [Concomitant]
     Indication: ANTICOAGULANT THERAPY
     Dosage: DAILY
     Route: 048
     Dates: start: 20130203
  4. MONOCARDIL [Concomitant]
     Route: 048
     Dates: start: 20130203
  5. CARVIDILOL [Concomitant]
     Dosage: TWO TIMES A DAY
     Route: 048
     Dates: start: 20130203
  6. LOSARTANA [Concomitant]
     Indication: HYPERTENSION
     Route: 048
     Dates: start: 20130203

REACTIONS (3)
  - Haemorrhage urinary tract [Not Recovered/Not Resolved]
  - Dyspnoea [Recovered/Resolved]
  - Pruritus generalised [Not Recovered/Not Resolved]
